FAERS Safety Report 15785803 (Version 1)
Quarter: 2019Q1

REPORT INFORMATION
  Report Type: Report from Study
  Country: US (occurrence: US)
  Receive Date: 20190103
  Receipt Date: 20190103
  Transmission Date: 20190417
  Serious: No
  Sender: FDA-Public Use
  Company Number: US-ROCHE-2239136

PATIENT
  Age: 67 Year
  Sex: Female
  Weight: 90.8 kg

DRUGS (1)
  1. OCREVUS [Suspect]
     Active Substance: OCRELIZUMAB
     Indication: PRIMARY PROGRESSIVE MULTIPLE SCLEROSIS
     Dosage: RECEIVED FIRST FULL DOSE ON 10/SEP/2018
     Route: 042
     Dates: start: 201803

REACTIONS (3)
  - Burning sensation [Recovering/Resolving]
  - Pharyngitis [Recovering/Resolving]
  - Nasopharyngitis [Recovering/Resolving]

NARRATIVE: CASE EVENT DATE: 20181231
